FAERS Safety Report 13402234 (Version 2)
Quarter: 2017Q2

REPORT INFORMATION
  Report Type: Spontaneous
  Country: FR (occurrence: FR)
  Receive Date: 20170404
  Receipt Date: 20170525
  Transmission Date: 20170830
  Serious: Yes (Hospitalization, Other)
  Sender: FDA-Public Use
  Company Number: FR-ABBVIE-17K-056-1931238-00

PATIENT
  Age: 41 Year
  Sex: Female
  Weight: 61 kg

DRUGS (1)
  1. HUMIRA [Suspect]
     Active Substance: ADALIMUMAB
     Indication: PSORIASIS
     Route: 058
     Dates: start: 20150903, end: 20160915

REACTIONS (4)
  - Panic attack [Unknown]
  - Stillbirth [Unknown]
  - Exposure during pregnancy [Unknown]
  - Abortion induced [Unknown]

NARRATIVE: CASE EVENT DATE: 20170303
